FAERS Safety Report 16717107 (Version 1)
Quarter: 2019Q3

REPORT INFORMATION
  Report Type: Spontaneous
  Country: US (occurrence: US)
  Receive Date: 20190819
  Receipt Date: 20190819
  Transmission Date: 20191005
  Serious: No
  Sender: FDA-Public Use
  Company Number: US-BEH-2019105473

PATIENT
  Sex: Female

DRUGS (2)
  1. PRIVIGEN [Suspect]
     Active Substance: HUMAN IMMUNOGLOBULIN G
     Indication: GUILLAIN-BARRE SYNDROME
     Dosage: 140 GRAM (35 GRAMS EVERY DAY FOR 4 DAYS), QMT
     Route: 042
     Dates: start: 20181213
  2. PRIVIGEN [Suspect]
     Active Substance: HUMAN IMMUNOGLOBULIN G
     Dosage: 25 GRAM, TOT
     Route: 042
     Dates: start: 20190725, end: 20190725

REACTIONS (3)
  - Product container issue [Unknown]
  - Underdose [Unknown]
  - No adverse event [Unknown]
